FAERS Safety Report 14765480 (Version 1)
Quarter: 2018Q2

REPORT INFORMATION
  Report Type: Spontaneous
  Country: US (occurrence: US)
  Receive Date: 20180416
  Receipt Date: 20180416
  Transmission Date: 20180711
  Serious: Yes (Other)
  Sender: FDA-Public Use
  Company Number: US-MYLANLABS-2018M1023066

PATIENT
  Sex: Male

DRUGS (1)
  1. MEMANTINE HYDROCHLORIDE TABLETS, USP [Suspect]
     Active Substance: MEMANTINE HYDROCHLORIDE
     Indication: DEMENTIA
     Dosage: UNK
     Route: 048
     Dates: start: 20180319, end: 20180330

REACTIONS (4)
  - Abnormal behaviour [Recovering/Resolving]
  - Condition aggravated [Recovering/Resolving]
  - Personality change [Recovering/Resolving]
  - Drug ineffective [Unknown]
